FAERS Safety Report 8794993 (Version 1)
Quarter: 2012Q4

REPORT INFORMATION
  Report Type: 
  Country: US (occurrence: US)
  Receive Date: 20120917
  Receipt Date: 20120917
  Transmission Date: 20130627
  Serious: No
  Sender: FDA-Public Use
  Company Number: US-ASTRAZENECA-2012SE69605

PATIENT
  Age: 58 Year
  Sex: Female
  Weight: 122.5 kg

DRUGS (4)
  1. SEROQUEL XR [Suspect]
     Indication: BIPOLAR DISORDER
     Route: 048
  2. CRESTOR [Suspect]
     Indication: BLOOD CHOLESTEROL ABNORMAL
     Route: 048
     Dates: start: 2011
  3. LITHIUM [Concomitant]
     Indication: MENTAL DISORDER
     Route: 048
  4. VENLAFAXINE [Concomitant]
     Indication: MENTAL DISORDER
     Route: 048

REACTIONS (2)
  - Memory impairment [Unknown]
  - Thyroid disorder [Unknown]
